FAERS Safety Report 18145717 (Version 3)
Quarter: 2020Q3

REPORT INFORMATION
  Report Type: Spontaneous
  Country: US (occurrence: US)
  Receive Date: 20200813
  Receipt Date: 20200901
  Transmission Date: 20201103
  Serious: Yes (Other)
  Sender: FDA-Public Use
  Company Number: US-009507513-0706USA05415

PATIENT
  Age: 46 Year
  Sex: Male

DRUGS (2)
  1. VYTORIN [Suspect]
     Active Substance: EZETIMIBE\SIMVASTATIN
     Indication: HYPERCHOLESTEROLAEMIA
     Dosage: 10?20 MILLIGRAM
     Route: 048
  2. VYTORIN [Suspect]
     Active Substance: EZETIMIBE\SIMVASTATIN
     Dosage: 10?10 MILLIGRAM
     Route: 048

REACTIONS (2)
  - Tendonitis [Recovered/Resolved]
  - Tendon rupture [Recovered/Resolved]
